FAERS Safety Report 7946008-0 (Version None)
Quarter: 2011Q4

REPORT INFORMATION
  Report Type: 
  Country: None (occurrence: None)
  Receive Date: 20111129
  Receipt Date: 20111122
  Transmission Date: 20120403
  Serious: Yes (Hospitalization)
  Sender: FDA-Public Use
  Company Number: US-GLAXOSMITHKLINE-A0782959A

PATIENT
  Age: 55 Year
  Sex: Female
  Weight: 79.5 kg

DRUGS (7)
  1. AVANDIA [Suspect]
     Indication: DIABETES MELLITUS
     Dosage: 4MG TWICE PER DAY
     Route: 048
     Dates: start: 20070101, end: 20070601
  2. GLUCOTROL [Concomitant]
  3. METFORMIN HCL [Concomitant]
  4. HYDROCHLOROTHIAZIDE [Concomitant]
  5. NEXIUM [Concomitant]
  6. STARLIX [Concomitant]
  7. GLYBURIDE [Concomitant]

REACTIONS (3)
  - CORONARY ARTERY DISEASE [None]
  - CARDIAC FAILURE CONGESTIVE [None]
  - MYOCARDIAL INFARCTION [None]
